FAERS Safety Report 4596130-4 (Version None)
Quarter: 2005Q1

REPORT INFORMATION
  Report Type: 
  Country: None (occurrence: None)
  Receive Date: 20050302
  Receipt Date: 20050223
  Transmission Date: 20050727
  Serious: Yes (Hospitalization)
  Sender: FDA-Public Use
  Company Number: FR-BRISTOL-MYERS SQUIBB COMPANY-12876405

PATIENT
  Age: 74 Year
  Sex: Female

DRUGS (7)
  1. COUMADIN [Suspect]
     Indication: VENTRICULAR ARRHYTHMIA
     Route: 048
     Dates: start: 20040524, end: 20041020
  2. COUMADIN [Suspect]
     Indication: ATRIAL FIBRILLATION
     Route: 048
     Dates: start: 20040524, end: 20041020
  3. GLUCOPHAGE [Suspect]
     Dates: end: 20041020
  4. COZAAR [Suspect]
     Dates: end: 20041020
  5. LIPANTHYL [Suspect]
     Dates: end: 20041020
  6. LOVENOX [Suspect]
     Dates: start: 20040425
  7. DIAMICRON [Concomitant]
     Dates: start: 20040425

REACTIONS (2)
  - HAEMORRHOIDS [None]
  - RECTAL HAEMORRHAGE [None]
